FAERS Safety Report 7279165-2 (Version None)
Quarter: 2011Q1

REPORT INFORMATION
  Report Type: 
  Country: None (occurrence: None)
  Receive Date: 20110207
  Receipt Date: 20110126
  Transmission Date: 20110831
  Serious: Yes (Hospitalization)
  Sender: FDA-Public Use
  Company Number: JP-AMGEN-JPNSP2011006843

PATIENT
  Sex: Male

DRUGS (5)
  1. NORVASC [Concomitant]
     Dosage: 10 MG, UNK
     Route: 048
  2. NESPO [Suspect]
     Dosage: 40 A?G, QWK
     Route: 042
  3. CALTAN [Concomitant]
     Dosage: 500 MG, TID
     Route: 048
  4. REGPARA [Suspect]
     Indication: GLOMERULONEPHRITIS CHRONIC
     Dosage: 25 MG, UNK
     Route: 048
     Dates: end: 20110125
  5. FOSRENOL [Concomitant]
     Dosage: 500 MG, UNK
     Route: 048

REACTIONS (3)
  - RENAL HAEMORRHAGE [None]
  - VOMITING [None]
  - HAEMOGLOBIN DECREASED [None]
